FAERS Safety Report 5136114-0 (Version None)
Quarter: 2006Q4

REPORT INFORMATION
  Report Type: 
  Country: None (occurrence: None)
  Receive Date: 20061027
  Receipt Date: 20051202
  Transmission Date: 20070319
  Serious: Yes (Hospitalization)
  Sender: FDA-Public Use
  Company Number: HQWYE839506DEC05

PATIENT
  Sex: Female
  Weight: 35 kg

DRUGS (18)
  1. ENBREL [Suspect]
     Indication: RHEUMATOID ARTHRITIS
     Route: 058
     Dates: start: 20051122, end: 20051202
  2. ENBREL [Suspect]
     Route: 058
     Dates: start: 20051213
  3. PREDONINE [Suspect]
     Indication: RHEUMATOID ARTHRITIS
     Route: 048
     Dates: end: 20051201
  4. RHEUMATREX [Suspect]
     Indication: RHEUMATOID ARTHRITIS
     Route: 048
  5. RABEPRAZOLE SODIUM [Concomitant]
     Indication: DRUG USE FOR UNKNOWN INDICATION
     Route: 048
  6. GLUCOBAY [Concomitant]
     Indication: DIABETES MELLITUS
     Route: 048
  7. AMARYL [Concomitant]
     Indication: DIABETES MELLITUS
     Route: 048
  8. EVISTA [Concomitant]
     Indication: OSTEOPOROSIS
     Route: 048
  9. BUSCOPAN [Concomitant]
     Indication: ABDOMINAL PAIN UPPER
     Route: 048
     Dates: end: 20051201
  10. ISCOTIN [Concomitant]
     Indication: ANTIBIOTIC PROPHYLAXIS
     Route: 048
     Dates: start: 20051116
  11. CLEANAL [Concomitant]
  12. MUCOSOL [Concomitant]
  13. ASPENON [Concomitant]
  14. ALFACALCIDOL [Concomitant]
  15. ONE-ALPHA [Concomitant]
  16. BACTRIM [Concomitant]
  17. FOLIAMIN [Concomitant]
  18. CLARITHROMYCIN [Concomitant]

REACTIONS (6)
  - BLOOD LACTATE DEHYDROGENASE INCREASED [None]
  - HAEMATOCRIT DECREASED [None]
  - HAEMOGLOBIN DECREASED [None]
  - PLEURISY [None]
  - PYREXIA [None]
  - URINARY RETENTION [None]
